FAERS Safety Report 8296621-9 (Version None)
Quarter: 2012Q2

REPORT INFORMATION
  Report Type: 
  Country: None (occurrence: None)
  Receive Date: 20120418
  Receipt Date: 20120418
  Transmission Date: 20120825
  Serious: Yes (Other)
  Sender: FDA-Public Use
  Company Number: None

PATIENT
  Age: 36 Year
  Sex: Female
  Weight: 58.967 kg

DRUGS (2)
  1. AVELOX [Suspect]
     Indication: SINUSITIS
     Dates: start: 20120411, end: 20120417
  2. VITAMIN D [Concomitant]
     Route: 048

REACTIONS (5)
  - THINKING ABNORMAL [None]
  - PANIC ATTACK [None]
  - HEART RATE INCREASED [None]
  - TACHYPHRENIA [None]
  - PRESYNCOPE [None]
